FAERS Safety Report 17706362 (Version 3)
Quarter: 2022Q3

REPORT INFORMATION
  Report Type: Spontaneous
  Country: US (occurrence: US)
  Receive Date: 20200424
  Receipt Date: 20220824
  Transmission Date: 20221027
  Serious: No
  Sender: FDA-Public Use
  Company Number: US-ARBOR PHARMACEUTICALS, LLC-US-2020ARB000218

PATIENT
  Age: 6 Year
  Sex: Female

DRUGS (5)
  1. TRIPTODUR [Suspect]
     Active Substance: TRIPTORELIN
     Indication: Product used for unknown indication
     Dosage: UNK, SINGLE
     Route: 030
     Dates: start: 20190918, end: 20190918
  2. TRIPTODUR [Suspect]
     Active Substance: TRIPTORELIN
     Dosage: UNK, SINGLE
     Route: 030
     Dates: start: 20200921, end: 20200921
  3. TRIPTODUR [Suspect]
     Active Substance: TRIPTORELIN
     Dosage: UNK
  4. TRIPTODUR [Suspect]
     Active Substance: TRIPTORELIN
     Dosage: UNK
  5. TRIPTODUR [Suspect]
     Active Substance: TRIPTORELIN
     Dosage: UNK

REACTIONS (7)
  - Weight increased [Unknown]
  - Amnesia [Not Recovered/Not Resolved]
  - Condition aggravated [Unknown]
  - Syringe issue [Unknown]
  - Needle issue [Unknown]
  - Product administration error [Unknown]
  - Product dose omission issue [Unknown]

NARRATIVE: CASE EVENT DATE: 20220302
